FAERS Safety Report 7931073-7 (Version None)
Quarter: 2011Q4

REPORT INFORMATION
  Report Type: 
  Country: None (occurrence: None)
  Receive Date: 20111121
  Receipt Date: 20111112
  Transmission Date: 20120403
  Serious: Yes (Hospitalization)
  Sender: FDA-Public Use
  Company Number: US-JNJFOC-20040401238

PATIENT
  Sex: Male
  Weight: 78.93 kg

DRUGS (16)
  1. FOSAMAX [Concomitant]
  2. LIPITOR [Concomitant]
  3. INFLIXIMAB [Suspect]
     Indication: RHEUMATOID ARTHRITIS
     Route: 042
     Dates: end: 20030801
  4. METHOTREXATE [Concomitant]
  5. ARAVA [Concomitant]
  6. CALCIUM [Concomitant]
  7. FOLIC ACID [Concomitant]
  8. MONOPRIL [Concomitant]
  9. PREDNISONE TAB [Concomitant]
  10. LOSARTAN [Concomitant]
  11. INFLIXIMAB [Suspect]
     Route: 042
     Dates: start: 20010106
  12. INFLIXIMAB [Suspect]
     Route: 042
     Dates: start: 20010601
  13. PERCOCET [Concomitant]
  14. VOLTAREN [Concomitant]
  15. NEXIUM [Concomitant]
  16. MULTI-VITAMIN [Concomitant]

REACTIONS (7)
  - RENAL FAILURE ACUTE [None]
  - GASTROENTERITIS STAPHYLOCOCCAL [None]
  - LEUKOPENIA [None]
  - LIVER FUNCTION TEST ABNORMAL [None]
  - LISTERIOSIS [None]
  - RHEUMATOID ARTHRITIS [None]
  - SEPTIC SHOCK [None]
